FAERS Safety Report 22636857 (Version 1)
Quarter: 2023Q2

REPORT INFORMATION
  Report Type: Spontaneous
  Country: AU (occurrence: AU)
  Receive Date: 20230626
  Receipt Date: 20230626
  Transmission Date: 20230721
  Serious: Yes (Other)
  Sender: FDA-Public Use
  Company Number: AU-ALKEM LABORATORIES LIMITED-AU-ALKEM-2023-06788

PATIENT
  Age: 35 Year
  Sex: Female
  Weight: 75 kg

DRUGS (5)
  1. MORPHINE SULFATE [Suspect]
     Active Substance: MORPHINE SULFATE
     Indication: Anaesthesia
     Dosage: 100 MICROGRAM (PRESERVATIVE-FREE)
     Route: 037
  2. ACETAMINOPHEN [Concomitant]
     Active Substance: ACETAMINOPHEN
     Indication: Analgesic therapy
     Dosage: 1000 MILLIGRAM
     Route: 065
  3. BUPIVACAINE [Concomitant]
     Active Substance: BUPIVACAINE
     Indication: Anaesthesia
     Dosage: 2.3 MILLILITER (HEAVY-BUPIVACAINE AT THIRD TO FOURTH LUMBAR SPACE WITH A BLOCK HEIGHT TO THE THIRD T
     Route: 065
  4. CARBETOCIN [Concomitant]
     Active Substance: CARBETOCIN
     Indication: Product used for unknown indication
     Dosage: 100 GRAM
     Route: 065
  5. PARECOXIB [Concomitant]
     Active Substance: PARECOXIB
     Indication: Analgesic therapy
     Dosage: 40 MICROGRAM
     Route: 042

REACTIONS (3)
  - Hypothermia [Recovered/Resolved]
  - Bradycardia [Not Recovered/Not Resolved]
  - Hyperhidrosis [Recovered/Resolved]
